FAERS Safety Report 9164539 (Version 2)
Quarter: 2013Q2

REPORT INFORMATION
  Report Type: Spontaneous
  Country: US (occurrence: None)
  Receive Date: 20130221
  Receipt Date: 20130415
  Transmission Date: 20140414
  Serious: Yes (Hospitalization)
  Sender: FDA-Public Use
  Company Number: EUS-2013-00053

PATIENT
  Age: 6 Year
  Sex: Male
  Weight: 26 kg

DRUGS (1)
  1. ERWINASE [Suspect]
     Indication: ACUTE LYMPHOCYTIC LEUKAEMIA
     Dosage: 20,000 UNITS/M2 I.E 19,000 UNITS (1 IN 1 SINGLE DOSE),INTRAVENOUS (NOT OTHERWISE SPECIFIED)
     Route: 042
     Dates: start: 20130103, end: 20130103

REACTIONS (6)
  - Headache [None]
  - Chills [None]
  - Pallor [None]
  - Tachycardia [None]
  - Infusion related reaction [None]
  - Malaise [None]
